FAERS Safety Report 24084746 (Version 1)
Quarter: 2024Q3

REPORT INFORMATION
  Report Type: Spontaneous
  Country: US (occurrence: None)
  Receive Date: 20240712
  Receipt Date: 20240712
  Transmission Date: 20241017
  Serious: No
  Sender: Public
  Company Number: None

PATIENT
  Sex: Female
  Weight: 56.4 kg

DRUGS (2)
  1. CARBOPLATIN [Suspect]
     Active Substance: CARBOPLATIN
  2. Paclitaxel (Paxol) [Concomitant]

REACTIONS (2)
  - Haemoglobin decreased [None]
  - White blood cell count abnormal [None]

NARRATIVE: CASE EVENT DATE: 20231220
